FAERS Safety Report 8480465-9 (Version None)
Quarter: 2012Q3

REPORT INFORMATION
  Report Type: 
  Country: None (occurrence: None)
  Receive Date: 20120702
  Receipt Date: 20120622
  Transmission Date: 20120928
  Serious: Yes (Hospitalization)
  Sender: FDA-Public Use
  Company Number: US-BIOGENIDEC-2012BI013821

PATIENT
  Sex: Female

DRUGS (3)
  1. AVONEX [Suspect]
     Indication: MULTIPLE SCLEROSIS
     Route: 030
     Dates: start: 20010402, end: 20090228
  2. AVONEX [Suspect]
     Route: 030
     Dates: start: 20110921
  3. AVONEX [Suspect]
     Route: 030
     Dates: start: 20110921

REACTIONS (2)
  - OSTEOPOROSIS [None]
  - ARTHRALGIA [None]
